FAERS Safety Report 5407251-8 (Version None)
Quarter: 2007Q3

REPORT INFORMATION
  Report Type: 
  Country: None (occurrence: None)
  Receive Date: 20070807
  Receipt Date: 20070727
  Transmission Date: 20080115
  Serious: Yes (Hospitalization)
  Sender: FDA-Public Use
  Company Number: B0479055A

PATIENT
  Age: 7 Year
  Sex: Female

DRUGS (9)
  1. LAMIVUDINE [Suspect]
     Indication: HIV INFECTION
     Dates: start: 20070614
  2. ABACAVIR [Suspect]
     Indication: HIV INFECTION
     Dates: start: 20070614
  3. NEVIRAPINE [Suspect]
     Indication: HIV INFECTION
     Dates: start: 20070614, end: 20070710
  4. COTRIM [Suspect]
     Dates: start: 20070531, end: 20070626
  5. AMOXICLAV [Suspect]
     Dates: start: 20070621, end: 20070625
  6. MULTI-VITAMIN [Concomitant]
     Dates: start: 20070531
  7. BRUFEN [Concomitant]
     Dates: start: 20070619, end: 20070622
  8. EFAVIRENZ [Concomitant]
     Dates: start: 20070713
  9. CLINDAMYCIN HCL [Concomitant]
     Dates: start: 20070719

REACTIONS (21)
  - BACTERAEMIA [None]
  - BLISTER [None]
  - CONJUNCTIVITIS [None]
  - DERMATITIS BULLOUS [None]
  - DRUG HYPERSENSITIVITY [None]
  - ERYTHEMA [None]
  - HYPERSENSITIVITY [None]
  - MALAISE [None]
  - MOUTH ULCERATION [None]
  - OEDEMA PERIPHERAL [None]
  - PAIN [None]
  - PHARYNGITIS [None]
  - PNEUMONIA [None]
  - PYREXIA [None]
  - RASH [None]
  - RASH MACULAR [None]
  - SEPSIS [None]
  - SKIN EXFOLIATION [None]
  - STEVENS-JOHNSON SYNDROME [None]
  - ULCER [None]
  - URTICARIA [None]
